FAERS Safety Report 15247882 (Version 1)
Quarter: 2018Q3

REPORT INFORMATION
  Report Type: Report from Study
  Country: FR (occurrence: FR)
  Receive Date: 20180807
  Receipt Date: 20180807
  Transmission Date: 20181010
  Serious: Yes (Other)
  Sender: FDA-Public Use
  Company Number: FR-TEVA-2018-FR-935693

PATIENT
  Age: 53 Year
  Sex: Male

DRUGS (10)
  1. IRINOTECAN [Suspect]
     Active Substance: IRINOTECAN
     Route: 041
     Dates: start: 20160504, end: 20160504
  2. 5?FU [Suspect]
     Active Substance: FLUOROURACIL
     Route: 040
     Dates: start: 20160226, end: 20160226
  3. 5?FU [Suspect]
     Active Substance: FLUOROURACIL
     Route: 041
     Dates: start: 20160504, end: 20160504
  4. LEUCOVORIN. [Suspect]
     Active Substance: LEUCOVORIN
     Indication: COLORECTAL CANCER METASTATIC
     Route: 041
     Dates: start: 20160504, end: 20160504
  5. 5?FU [Suspect]
     Active Substance: FLUOROURACIL
     Route: 040
     Dates: start: 20160504, end: 20160504
  6. AFLIBERCEPT [Suspect]
     Active Substance: AFLIBERCEPT
     Route: 041
     Dates: start: 20160226, end: 20160226
  7. 5?FU [Suspect]
     Active Substance: FLUOROURACIL
     Indication: COLORECTAL CANCER METASTATIC
     Route: 041
     Dates: start: 20160226, end: 20160226
  8. IRINOTECAN [Suspect]
     Active Substance: IRINOTECAN
     Indication: COLORECTAL CANCER METASTATIC
     Route: 041
     Dates: start: 20160226, end: 20160226
  9. LEUCOVORIN. [Suspect]
     Active Substance: LEUCOVORIN
     Route: 041
     Dates: start: 20160226, end: 20160226
  10. AFLIBERCEPT [Suspect]
     Active Substance: AFLIBERCEPT
     Indication: COLORECTAL CANCER METASTATIC
     Route: 041
     Dates: start: 20160504, end: 20160504

REACTIONS (2)
  - Throat irritation [Not Recovered/Not Resolved]
  - Hyperkalaemia [Recovered/Resolved]

NARRATIVE: CASE EVENT DATE: 201605
